FAERS Safety Report 5524350-0 (Version None)
Quarter: 2007Q4

REPORT INFORMATION
  Report Type: 
  Country: None (occurrence: None)
  Receive Date: 20071121
  Receipt Date: 20071112
  Transmission Date: 20080405
  Serious: Yes (Hospitalization)
  Sender: FDA-Public Use
  Company Number: US-PFIZER INC-2007095879

PATIENT

DRUGS (2)
  1. SU-011,248 [Suspect]
     Indication: RECTAL CANCER
  2. BEVACIZUMAB [Suspect]

REACTIONS (2)
  - RECTAL ABSCESS [None]
  - TUMOUR NECROSIS [None]
